FAERS Safety Report 17242421 (Version 5)
Quarter: 2020Q1

REPORT INFORMATION
  Report Type: Report from Study
  Country: DE (occurrence: DE)
  Receive Date: 20200107
  Receipt Date: 20200310
  Transmission Date: 20200409
  Serious: Yes (Hospitalization, Other)
  Sender: FDA-Public Use
  Company Number: DE-MYLANLABS-2020M1001154

PATIENT
  Age: 43 Year
  Sex: Male
  Weight: 75 kg

DRUGS (5)
  1. PREGABALIN. [Suspect]
     Active Substance: PREGABALIN
     Dosage: 300 MILLIGRAM, QD
     Route: 048
  2. SOFOSBUVIR W/VELPATASVIR [Suspect]
     Active Substance: SOFOSBUVIR\VELPATASVIR
     Indication: CHRONIC HEPATITIS C
     Dosage: 1 DOSAGE FORM, QD
     Route: 048
     Dates: start: 20190425, end: 20190717
  3. LEVOMETHADONE [Suspect]
     Active Substance: LEVOMETHADONE
     Indication: PRODUCT USED FOR UNKNOWN INDICATION
     Dosage: 150 MG, QD
     Route: 048
     Dates: start: 20160329
  4. PREGABALIN. [Suspect]
     Active Substance: PREGABALIN
     Dosage: 300 MG, QD
     Route: 048
     Dates: start: 20190621
  5. PREGABALIN. [Suspect]
     Active Substance: PREGABALIN
     Indication: PHANTOM LIMB SYNDROME
     Dosage: 200 MG, BID
     Route: 048
     Dates: start: 20170828, end: 20190620

REACTIONS (4)
  - Depressed mood [Recovering/Resolving]
  - Phantom limb syndrome [Not Recovered/Not Resolved]
  - Insomnia [Not Recovered/Not Resolved]
  - Abscess limb [Recovered/Resolved]

NARRATIVE: CASE EVENT DATE: 20190919
